FAERS Safety Report 8458625-2 (Version None)
Quarter: 2012Q2

REPORT INFORMATION
  Report Type: 
  Country: None (occurrence: None)
  Receive Date: 20120615
  Receipt Date: 20120604
  Transmission Date: 20120825
  Serious: Yes (Hospitalization, Other)
  Sender: FDA-Public Use
  Company Number: 2012P1037825

PATIENT
  Age: 23 Year
  Sex: Female

DRUGS (1)
  1. RISPERIDONE [Suspect]
     Indication: SCHIZOPHRENIA, PARANOID TYPE
     Dosage: 6 MG;QD ; 4 MG;QD ; 2 MG;BID
     Dates: start: 20080101, end: 20080401

REACTIONS (6)
  - MOVEMENT DISORDER [None]
  - PLEUROTHOTONUS [None]
  - SPINAL DISORDER [None]
  - RESTING TREMOR [None]
  - AGRANULOCYTOSIS [None]
  - INTESTINAL OBSTRUCTION [None]
